FAERS Safety Report 6444949-7 (Version None)
Quarter: 2009Q4

REPORT INFORMATION
  Report Type: 
  Country: None (occurrence: None)
  Receive Date: 20091118
  Receipt Date: 20090925
  Transmission Date: 20100525
  Serious: No
  Sender: FDA-Public Use
  Company Number: US-BAYER-200934483NA

PATIENT
  Sex: Female

DRUGS (1)
  1. ULTRAVIST 300 [Suspect]
     Indication: DRUG USE FOR UNKNOWN INDICATION
     Dates: start: 20090617, end: 20090617

REACTIONS (5)
  - LIP SWELLING [None]
  - OEDEMA MOUTH [None]
  - PALLOR [None]
  - PRURITUS [None]
  - SWOLLEN TONGUE [None]
